FAERS Safety Report 5012242-5 (Version None)
Quarter: 2006Q2

REPORT INFORMATION
  Report Type: 
  Country: None (occurrence: None)
  Receive Date: 20060525
  Receipt Date: 20060525
  Transmission Date: 20061013
  Serious: Yes (Disabling)
  Sender: FDA-Public Use
  Company Number: None

PATIENT
  Age: 72 Year
  Sex: Male
  Weight: 77.27 kg

DRUGS (1)
  1. REGLAN [Suspect]
     Indication: NAUSEA
     Dates: start: 20050610, end: 20050713

REACTIONS (1)
  - NEUROLEPTIC MALIGNANT SYNDROME [None]
